FAERS Safety Report 22163438 (Version 2)
Quarter: 2023Q2

REPORT INFORMATION
  Report Type: Spontaneous
  Country: EG (occurrence: EG)
  Receive Date: 20230401
  Receipt Date: 20230410
  Transmission Date: 20230722
  Serious: Yes (Other)
  Sender: FDA-Public Use
  Company Number: EG-Accord-306185

PATIENT
  Age: 70 Year
  Sex: Female
  Weight: 55 kg

DRUGS (2)
  1. OXALIPLATIN [Suspect]
     Active Substance: OXALIPLATIN
     Indication: Colorectal cancer metastatic
     Dosage: EVERY TWO WEEKS
     Route: 042
     Dates: start: 201909, end: 202003
  2. BEVACIZUMAB [Concomitant]
     Active Substance: BEVACIZUMAB
     Indication: Colorectal cancer metastatic
     Dosage: EVERY TWO WEEKS
     Route: 042
     Dates: start: 201909, end: 202003

REACTIONS (2)
  - Neurotoxicity [Unknown]
  - Fatigue [Unknown]

NARRATIVE: CASE EVENT DATE: 20200601
